FAERS Safety Report 25275958 (Version 5)
Quarter: 2025Q3

REPORT INFORMATION
  Report Type: Spontaneous
  Country: SA (occurrence: SA)
  Receive Date: 20250507
  Receipt Date: 20250729
  Transmission Date: 20251020
  Serious: Yes (Other)
  Sender: NOVARTIS
  Company Number: SA-002147023-NVSC2025SA070600

PATIENT
  Age: 0 Year
  Sex: Male
  Weight: 6.5 kg

DRUGS (4)
  1. ZOLGENSMA [Suspect]
     Active Substance: ONASEMNOGENE ABEPARVOVEC-XIOI
     Indication: Spinal muscular atrophy
     Route: 042
     Dates: start: 20250419, end: 20250419
  2. Predo [Concomitant]
     Indication: Product used for unknown indication
     Route: 065
     Dates: start: 20250418
  3. Predo [Concomitant]
     Route: 065
     Dates: start: 20250418
  4. Predo [Concomitant]
     Route: 065
     Dates: start: 20250508

REACTIONS (6)
  - White blood cell count decreased [Recovered/Resolved]
  - Aspartate aminotransferase increased [Recovered/Resolved]
  - Blood bilirubin decreased [Recovered/Resolved]
  - Laboratory test abnormal [Recovered/Resolved]
  - Influenza [Recovered/Resolved]
  - Pyrexia [Recovered/Resolved]

NARRATIVE: CASE EVENT DATE: 20250424
